FAERS Safety Report 15549527 (Version 3)
Quarter: 2019Q2

REPORT INFORMATION
  Report Type: Spontaneous
  Country: US (occurrence: US)
  Receive Date: 20181025
  Receipt Date: 20190529
  Transmission Date: 20190711
  Serious: Yes (Other)
  Sender: FDA-Public Use
  Company Number: US-PFIZER INC-2018428202

PATIENT
  Age: 79 Year
  Sex: Male
  Weight: 86.18 kg

DRUGS (3)
  1. ADVIL [Suspect]
     Active Substance: IBUPROFEN
     Indication: ARTHRITIS
     Dosage: 200 MG, AS NEEDED(AT NIGHT)
     Route: 048
     Dates: start: 2018
  2. BABY ASPIRIN [Concomitant]
     Active Substance: ASPIRIN
     Dosage: UNK
  3. ADVIL [Suspect]
     Active Substance: IBUPROFEN
     Dosage: 1 DF, 1X/DAY (TABLET PER EVENING)

REACTIONS (4)
  - Hiatus hernia [Unknown]
  - Constipation [Not Recovered/Not Resolved]
  - Expired product administered [Unknown]
  - Gastrooesophageal reflux disease [Unknown]

NARRATIVE: CASE EVENT DATE: 2018
